FAERS Safety Report 25112406 (Version 1)
Quarter: 2025Q1

REPORT INFORMATION
  Report Type: Spontaneous
  Country: US (occurrence: US)
  Receive Date: 20250324
  Receipt Date: 20250324
  Transmission Date: 20250409
  Serious: No
  Sender: ALEXION PHARMACEUTICALS
  Company Number: US-AstraZeneca-CH-00829534A

PATIENT

DRUGS (1)
  1. FARXIGA [Suspect]
     Active Substance: DAPAGLIFLOZIN PROPANEDIOL
     Route: 065

REACTIONS (6)
  - Urinary tract infection [Not Recovered/Not Resolved]
  - Fungal infection [Unknown]
  - Pruritus genital [Unknown]
  - Genital swelling [Unknown]
  - Genital discomfort [Unknown]
  - Hypoacusis [Unknown]
